FAERS Safety Report 12366178 (Version 1)
Quarter: 2016Q2

REPORT INFORMATION
  Report Type: Report from Study
  Country: US (occurrence: US)
  Receive Date: 20160513
  Receipt Date: 20160513
  Transmission Date: 20160815
  Serious: Yes (Other)
  Sender: FDA-Public Use
  Company Number: US-AMGEN-USASL2016060202

PATIENT
  Age: 52 Year
  Sex: Female

DRUGS (1)
  1. ENBREL [Suspect]
     Active Substance: ETANERCEPT
     Indication: PRODUCT USED FOR UNKNOWN INDICATION
     Dosage: UNK UNK, UNK
     Route: 065

REACTIONS (6)
  - Pulmonary fibrosis [Unknown]
  - Pain [Unknown]
  - Systemic lupus erythematosus [Unknown]
  - Influenza [Unknown]
  - Palpitations [Unknown]
  - Herpes zoster [Unknown]

NARRATIVE: CASE EVENT DATE: 201604
